FAERS Safety Report 4746110-0 (Version None)
Quarter: 2005Q3

REPORT INFORMATION
  Report Type: 
  Country: None (occurrence: None)
  Receive Date: 20050816
  Receipt Date: 20050804
  Transmission Date: 20060218
  Serious: Yes (Hospitalization)
  Sender: FDA-Public Use
  Company Number: FR-BRISTOL-MYERS SQUIBB COMPANY-13064910

PATIENT
  Age: 63 Year
  Sex: Male

DRUGS (4)
  1. VIDEX [Suspect]
     Indication: ACQUIRED IMMUNODEFICIENCY SYNDROME
     Route: 048
     Dates: start: 20010915, end: 20050304
  2. VIRAMUNE [Concomitant]
  3. ZIAGEN [Concomitant]
     Indication: ACQUIRED IMMUNODEFICIENCY SYNDROME
     Dates: start: 20010915
  4. PRAVASTATIN [Concomitant]
     Indication: LIPIDS ABNORMAL
     Dates: start: 20041203

REACTIONS (2)
  - HYPERURICAEMIA [None]
  - NEPHROLITHIASIS [None]
